FAERS Safety Report 19577593 (Version 1)
Quarter: 2021Q3

REPORT INFORMATION
  Report Type: Report from Study
  Country: BR (occurrence: BR)
  Receive Date: 20210719
  Receipt Date: 20210719
  Transmission Date: 20211014
  Serious: Yes (Other)
  Sender: FDA-Public Use
  Company Number: NVSC2021BR157826

PATIENT
  Sex: Male

DRUGS (1)
  1. ENTRESTO [Suspect]
     Active Substance: SACUBITRIL\VALSARTAN
     Indication: PRODUCT USED FOR UNKNOWN INDICATION
     Dosage: UNK (97/103MG 60 CE)
     Route: 065

REACTIONS (4)
  - Gait disturbance [Unknown]
  - Cough [Unknown]
  - Pulmonary oedema [Unknown]
  - Asthenia [Unknown]
